FAERS Safety Report 19035649 (Version 1)
Quarter: 2021Q1

REPORT INFORMATION
  Report Type: Spontaneous
  Country: NZ (occurrence: NZ)
  Receive Date: 20210320
  Receipt Date: 20210320
  Transmission Date: 20210420
  Serious: Yes (Other)
  Sender: FDA-Public Use
  Company Number: NZ-SA-2021SA081215

PATIENT
  Age: 91 Year
  Sex: Female

DRUGS (5)
  1. CARVEDILOL. [Concomitant]
     Active Substance: CARVEDILOL
     Route: 048
  2. SALAZOPYRIN [Concomitant]
     Active Substance: SULFASALAZINE
     Route: 048
  3. CLOPIDOGREL BISULFATE. [Suspect]
     Active Substance: CLOPIDOGREL BISULFATE
     Dosage: UNK
     Route: 048
  4. DICLOFENAC [Interacting]
     Active Substance: DICLOFENAC
     Dosage: UNK
     Route: 048
  5. ATORVASTATIN [Concomitant]
     Active Substance: ATORVASTATIN
     Route: 048

REACTIONS (4)
  - Drug interaction [Unknown]
  - Renal failure [Unknown]
  - Melaena [Unknown]
  - Gastrointestinal haemorrhage [Unknown]
